FAERS Safety Report 19693590 (Version 2)
Quarter: 2021Q4

REPORT INFORMATION
  Report Type: Spontaneous
  Country: US (occurrence: US)
  Receive Date: 20210813
  Receipt Date: 20211001
  Transmission Date: 20220303
  Serious: Yes (Hospitalization)
  Sender: FDA-Public Use
  Company Number: US-SPECGX-T202101891

PATIENT
  Age: 35 Year
  Sex: Female

DRUGS (2)
  1. METHADONE [Suspect]
     Active Substance: METHADONE HYDROCHLORIDE
     Indication: Drug use disorder
     Dosage: 30 MILLIGRAM, QD
     Route: 065
  2. METHADONE [Suspect]
     Active Substance: METHADONE HYDROCHLORIDE
     Dosage: 160 MILLIGRAM, QD
     Route: 065

REACTIONS (5)
  - Blood glucose increased [Unknown]
  - Left ventricular failure [Unknown]
  - Torsade de pointes [Unknown]
  - Hypokalaemia [Unknown]
  - Exposure during pregnancy [Unknown]
